FAERS Safety Report 24678487 (Version 2)
Quarter: 2024Q4

REPORT INFORMATION
  Report Type: Spontaneous
  Country: AE (occurrence: AE)
  Receive Date: 20241129
  Receipt Date: 20241204
  Transmission Date: 20250115
  Serious: Yes (Hospitalization)
  Sender: MACLEODS
  Company Number: AE-MACLEODS PHARMA-MAC2024050430

PATIENT

DRUGS (7)
  1. ARIPIPRAZOLE [Suspect]
     Active Substance: ARIPIPRAZOLE
     Indication: Schizophrenia
     Dosage: BID
     Route: 048
  2. ARIPIPRAZOLE [Suspect]
     Active Substance: ARIPIPRAZOLE
     Dosage: OD
     Route: 048
  3. ARIPIPRAZOLE [Suspect]
     Active Substance: ARIPIPRAZOLE
     Dosage: OD,
     Route: 048
  4. ARIPIPRAZOLE [Suspect]
     Active Substance: ARIPIPRAZOLE
     Dosage: LONG-ACTING INJECTABLE
     Route: 030
  5. HALOPERIDOL [Suspect]
     Active Substance: HALOPERIDOL
     Indication: Aggression
     Dosage: HS (HORA SOMNI) (AT BEDTIME)
     Route: 065
  6. HALOPERIDOL [Suspect]
     Active Substance: HALOPERIDOL
     Dosage: 12 HOUR
     Route: 065
  7. HALOPERIDOL [Suspect]
     Active Substance: HALOPERIDOL
     Dosage: BID
     Route: 065

REACTIONS (11)
  - Hallucination [Recovering/Resolving]
  - Homicidal ideation [Recovering/Resolving]
  - Aggression [Recovering/Resolving]
  - Aggression [Recovering/Resolving]
  - Suicidal ideation [Unknown]
  - Drug interaction [Recovering/Resolving]
  - Psychotic symptom [Recovering/Resolving]
  - Condition aggravated [Recovering/Resolving]
  - Schizophrenia [Recovering/Resolving]
  - Hand fracture [Unknown]
  - Physical assault [Unknown]
